FAERS Safety Report 10419336 (Version 3)
Quarter: 2014Q3

REPORT INFORMATION
  Report Type: Spontaneous
  Country: KR (occurrence: KR)
  Receive Date: 20140829
  Receipt Date: 20140912
  Transmission Date: 20150326
  Serious: Yes (Hospitalization, Other)
  Sender: FDA-Public Use
  Company Number: KR-009507513-1408KOR016290

PATIENT
  Age: 60 Year
  Sex: Female
  Weight: 58.5 kg

DRUGS (6)
  1. ARAVA [Concomitant]
     Active Substance: LEFLUNOMIDE
     Indication: RHEUMATOID ARTHRITIS
     Dosage: TOTAL DAILY DOSE 20 MG
     Route: 048
     Dates: start: 200802
  2. FOLIC ACID. [Concomitant]
     Active Substance: FOLIC ACID
     Indication: RHEUMATOID ARTHRITIS
     Dosage: TOTAL DAILY DOSE 1 MG
     Route: 048
     Dates: start: 200809
  3. CELEBREX [Concomitant]
     Active Substance: CELECOXIB
     Indication: RHEUMATOID ARTHRITIS
     Dosage: TOTAL DAILY DOSE: 200 MG
     Route: 048
     Dates: start: 200809
  4. FOSAMAX PLUS D [Suspect]
     Active Substance: ALENDRONATE SODIUM\CHOLECALCIFEROL
     Indication: OSTEOPOROSIS
     Dosage: TOTAL DAILY DOSE: 1 TABLET/WEEK
     Route: 048
     Dates: start: 200809, end: 201212
  5. METHOTREXATE [Concomitant]
     Active Substance: METHOTREXATE
     Indication: RHEUMATOID ARTHRITIS
     Dosage: TOTAL DAILY DOSE: 12.5 MG/WEEK
     Route: 048
     Dates: start: 200809
  6. SOLONDO [Concomitant]
     Active Substance: PREDNISOLONE
     Indication: RHEUMATOID ARTHRITIS
     Dosage: TOTAL DAILY DOSE: 2.5 MG
     Route: 048
     Dates: start: 200809

REACTIONS (4)
  - Closed fracture manipulation [Recovered/Resolved]
  - Atypical femur fracture [Recovered/Resolved]
  - Intramedullary rod insertion [Recovered/Resolved]
  - Maternal exposure during pregnancy [Unknown]

NARRATIVE: CASE EVENT DATE: 201301
